FAERS Safety Report 7249276-6 (Version None)
Quarter: 2011Q1

REPORT INFORMATION
  Report Type: 
  Country: None (occurrence: None)
  Receive Date: 20110128
  Receipt Date: 20101123
  Transmission Date: 20110831
  Serious: Yes (Hospitalization, Other)
  Sender: FDA-Public Use
  Company Number: US-BAYER-201030781NA

PATIENT
  Sex: Female
  Weight: 57.143 kg

DRUGS (2)
  1. YAZ [Suspect]
     Indication: DYSMENORRHOEA
     Dosage: UNK
     Route: 048
     Dates: start: 20070301, end: 20070801
  2. YASMIN [Suspect]
     Indication: DYSMENORRHOEA
     Dosage: UNK
     Route: 048
     Dates: start: 20070301, end: 20070801

REACTIONS (9)
  - CHEST PAIN [None]
  - HYPERHIDROSIS [None]
  - PANCREATITIS [None]
  - DEPRESSION [None]
  - ANXIETY [None]
  - MYOCARDIAL INFARCTION [None]
  - THROMBOSIS [None]
  - NAUSEA [None]
  - VOMITING [None]
